FAERS Safety Report 5381226-X (Version None)
Quarter: 2007Q3

REPORT INFORMATION
  Report Type: 
  Country: None (occurrence: None)
  Receive Date: 20070706
  Receipt Date: 20070626
  Transmission Date: 20080115
  Serious: Yes (Other)
  Sender: FDA-Public Use
  Company Number: US-PFIZER INC-2007053432

PATIENT
  Sex: Female
  Weight: 59.09 kg

DRUGS (4)
  1. LIPITOR [Suspect]
     Indication: BLOOD CHOLESTEROL INCREASED
     Route: 048
     Dates: start: 20060501, end: 20060501
  2. CYTOMEL [Concomitant]
  3. SYNTHROID [Concomitant]
  4. ACIPHEX [Concomitant]

REACTIONS (3)
  - GAIT DISTURBANCE [None]
  - MYALGIA [None]
  - VIRAL INFECTION [None]
